FAERS Safety Report 10611125 (Version 1)
Quarter: 2014Q4

REPORT INFORMATION
  Report Type: Spontaneous
  Country: US (occurrence: US)
  Receive Date: 20141126
  Receipt Date: 20141126
  Transmission Date: 20150529
  Serious: No
  Sender: FDA-Public Use
  Company Number: US-GLAXOSMITHKLINE-A1084705A

PATIENT

DRUGS (6)
  1. PREDNISONE. [Concomitant]
     Active Substance: PREDNISONE
  2. SINGULAIR [Concomitant]
     Active Substance: MONTELUKAST SODIUM
  3. CLARITIN [Concomitant]
     Active Substance: LORATADINE
  4. MULTIVITAMINS [Concomitant]
     Active Substance: VITAMINS
  5. FLOVENT [Suspect]
     Active Substance: FLUTICASONE PROPIONATE
     Route: 055
  6. PROVENTIL [Concomitant]
     Active Substance: ALBUTEROL

REACTIONS (1)
  - Tooth discolouration [Not Recovered/Not Resolved]
